FAERS Safety Report 23031211 (Version 1)
Quarter: 2023Q4

REPORT INFORMATION
  Report Type: Spontaneous
  Country: GB (occurrence: GB)
  Receive Date: 20231005
  Receipt Date: 20231005
  Transmission Date: 20240109
  Serious: Yes (Other)
  Sender: FDA-Public Use
  Company Number: GB-MHRA-MED-202309281512401190-RLDSB

PATIENT
  Age: 71 Year
  Sex: Female

DRUGS (8)
  1. AMLODIPINE [Suspect]
     Active Substance: AMLODIPINE BESYLATE
     Dosage: 10 MG, QD
  2. ATORVASTATIN [Suspect]
     Active Substance: ATORVASTATIN
     Dosage: 40 MG, QD
  3. EMPAGLIFLOZIN [Suspect]
     Active Substance: EMPAGLIFLOZIN
     Dosage: 10 MG, QD
  4. LANTUS [Suspect]
     Active Substance: INSULIN GLARGINE
     Dosage: UNK
  5. LISINOPRIL [Suspect]
     Active Substance: LISINOPRIL
     Dosage: 200 MG
  6. METFORMIN HYDROCHLORIDE [Suspect]
     Active Substance: METFORMIN HYDROCHLORIDE
     Dosage: 1G (MODIFIED RELEASE) WITH BREAKFAST
  7. NAFRONYL OXALATE [Suspect]
     Active Substance: NAFRONYL OXALATE
     Dosage: 200MG TDS;
  8. WARFARIN SODIUM [Suspect]
     Active Substance: WARFARIN SODIUM
     Dosage: AS PER INR; ;

REACTIONS (1)
  - Renal cell carcinoma [Not Recovered/Not Resolved]
